FAERS Safety Report 6302092-1 (Version None)
Quarter: 2009Q3

REPORT INFORMATION
  Report Type: 
  Country: None (occurrence: None)
  Receive Date: 20090807
  Receipt Date: 20090730
  Transmission Date: 20100115
  Serious: Yes (Life-Threatening)
  Sender: FDA-Public Use
  Company Number: NO-GENENTECH-288081

PATIENT
  Sex: Female

DRUGS (3)
  1. ACTIVASE [Suspect]
     Indication: CEREBRAL INFARCTION
     Dosage: 0.9 MG/KG, UNK
     Dates: start: 20090111, end: 20090111
  2. OMNIPAQUE 140 [Suspect]
     Indication: ANGIOGRAM
     Dosage: 300 MG/ML, UNK
     Dates: start: 20090111, end: 20090111
  3. LEVOTHYROXINE SODIUM [Concomitant]
     Indication: HYPOTHYROIDISM
     Dosage: 75 A?G, QD

REACTIONS (9)
  - ANAPHYLACTIC SHOCK [None]
  - CIRCULATORY COLLAPSE [None]
  - DYSPNOEA [None]
  - OEDEMA MOUTH [None]
  - PHARYNGEAL OEDEMA [None]
  - RASH ERYTHEMATOUS [None]
  - RESPIRATORY DISORDER [None]
  - TONGUE OEDEMA [None]
  - UPPER AIRWAY OBSTRUCTION [None]
